FAERS Safety Report 13538377 (Version 2)
Quarter: 2017Q2

REPORT INFORMATION
  Report Type: Report from Study
  Country: None (occurrence: DE)
  Receive Date: 20170512
  Receipt Date: 20170607
  Transmission Date: 20170830
  Serious: Yes (Hospitalization)
  Sender: FDA-Public Use
  Company Number: DE-ABBVIE-17K-062-1967215-00

PATIENT
  Age: 66 Year
  Sex: Female

DRUGS (3)
  1. OPIATE SQUILL LINCTUS (DRIMIA MARITIMA BULB\PAPAVER SOMNIFERUM DRY LATEX) [Suspect]
     Active Substance: DRIMIA MARITIMA BULB\OPIUM
     Indication: PRODUCT USED FOR UNKNOWN INDICATION
     Route: 065
  2. HUMIRA [Suspect]
     Active Substance: ADALIMUMAB
     Indication: RHEUMATOID ARTHRITIS
     Route: 058
     Dates: start: 20160502, end: 20161130
  3. MABTHERA [Concomitant]
     Active Substance: RITUXIMAB
     Indication: PRODUCT USED FOR UNKNOWN INDICATION
     Dates: start: 20161209, end: 20161209

REACTIONS (8)
  - Pubis fracture [Not Recovered/Not Resolved]
  - Mobility decreased [Recovered/Resolved]
  - Interstitial lung disease [Not Recovered/Not Resolved]
  - Disturbance in attention [Recovered/Resolved]
  - Acute kidney injury [Not Recovered/Not Resolved]
  - Fractured sacrum [Not Recovered/Not Resolved]
  - Dyspnoea exertional [Not Recovered/Not Resolved]
  - Overdose [Recovered/Resolved]

NARRATIVE: CASE EVENT DATE: 201611
